FAERS Safety Report 12242206 (Version 1)
Quarter: 2016Q2

REPORT INFORMATION
  Report Type: Report from Study
  Country: US (occurrence: US)
  Receive Date: 20160406
  Receipt Date: 20160406
  Transmission Date: 20160815
  Serious: No
  Sender: FDA-Public Use
  Company Number: US-MDT-ADR-2016-00492

PATIENT
  Age: 52 Year
  Sex: Female

DRUGS (22)
  1. CLONIDINE. [Suspect]
     Active Substance: CLONIDINE
     Dosage: 140.09 MCG/DAY
     Route: 037
     Dates: start: 20140805
  2. KETAMINE [Suspect]
     Active Substance: KETAMINE
     Dosage: 150.17 MCG/DAY
     Route: 037
     Dates: start: 20140715
  3. BACLOFEN. [Suspect]
     Active Substance: BACLOFEN
     Dosage: 360.41 MCG/DAY
     Route: 037
     Dates: end: 20140805
  4. BACLOFEN. [Suspect]
     Active Substance: BACLOFEN
     Dosage: 60.01 MCG/DAY
     Route: 037
     Dates: end: 20140715
  5. OXYMORPHONE IR [Concomitant]
     Active Substance: OXYMORPHONE
  6. DILAUDID [Suspect]
     Active Substance: HYDROMORPHONE HYDROCHLORIDE
     Dosage: 0.35022 MG/DAY
     Route: 037
     Dates: start: 20140805
  7. OXYMORPHONE ER [Concomitant]
     Active Substance: OXYMORPHONE
  8. BACLOFEN. [Suspect]
     Active Substance: BACLOFEN
     Dosage: 420.26 MCG/DAY
     Route: 037
     Dates: start: 20140805
  9. KETAMINE [Suspect]
     Active Substance: KETAMINE
     Dosage: 420.26 MCG/DAY
     Route: 037
     Dates: start: 20140805
  10. BUPIVACAINE. [Suspect]
     Active Substance: BUPIVACAINE
     Dosage: 6.007 MG/DAY
     Route: 037
     Dates: start: 20140715
  11. NEURONTIN [Concomitant]
     Active Substance: GABAPENTIN
  12. BUPIVACAINE. [Suspect]
     Active Substance: BUPIVACAINE
     Dosage: 18.021 MG/DAY
     Route: 037
     Dates: end: 20140805
  13. KETAMINE [Suspect]
     Active Substance: KETAMINE
     Dosage: 100.01 MCG/DAY
     Route: 037
     Dates: end: 20140715
  14. DILAUDID [Suspect]
     Active Substance: HYDROMORPHONE HYDROCHLORIDE
     Dosage: 0.30034 MG/DAY
     Route: 037
     Dates: end: 20140805
  15. KETAMINE [Suspect]
     Active Substance: KETAMINE
     Dosage: 360.41 MCG/DAY
     Route: 037
     Dates: end: 20140805
  16. DESIPRAMINE [Concomitant]
     Active Substance: DESIPRAMINE
  17. CLONIDINE. [Suspect]
     Active Substance: CLONIDINE
     Dosage: 120.14 MCG/DAY
     Route: 037
     Dates: end: 20140805
  18. BUPIVACAINE. [Suspect]
     Active Substance: BUPIVACAINE
     Dosage: 4.000 MG/DAY
     Route: 037
     Dates: end: 20140715
  19. BACLOFEN. [Suspect]
     Active Substance: BACLOFEN
     Dosage: 90.10 MCG/DAY
     Route: 037
     Dates: start: 20140715
  20. DILAUDID [Suspect]
     Active Substance: HYDROMORPHONE HYDROCHLORIDE
     Dosage: 0.10001 MG/DAY
     Route: 037
     Dates: end: 20140715
  21. DILAUDID [Suspect]
     Active Substance: HYDROMORPHONE HYDROCHLORIDE
     Dosage: 0.15017 MG/DAY
     Route: 037
     Dates: start: 20140715
  22. BUPIVACAINE. [Suspect]
     Active Substance: BUPIVACAINE
     Dosage: 21.013 MG/DAY
     Route: 037
     Dates: start: 20140805

REACTIONS (10)
  - Nausea [None]
  - Hypoaesthesia [None]
  - Asthenia [None]
  - Pain [None]
  - Adverse drug reaction [None]
  - Frequent bowel movements [None]
  - Anal incontinence [None]
  - Oedema peripheral [None]
  - Somnolence [None]
  - Pain in extremity [None]
